FAERS Safety Report 8574343-4 (Version None)
Quarter: 2012Q3

REPORT INFORMATION
  Report Type: 
  Country: None (occurrence: None)
  Receive Date: 20120806
  Receipt Date: 20120803
  Transmission Date: 20120928
  Serious: Yes (Other)
  Sender: FDA-Public Use
  Company Number: PHHY2012US067111

PATIENT
  Age: 53 Year
  Sex: Female

DRUGS (2)
  1. ESTRADIOL [Suspect]
     Indication: MENOPAUSAL SYMPTOMS
  2. ESTRIOL [Suspect]
     Indication: MENOPAUSAL SYMPTOMS

REACTIONS (5)
  - HALLUCINATION, AUDITORY [None]
  - AGITATION [None]
  - AGGRESSION [None]
  - SUBSTANCE-INDUCED PSYCHOTIC DISORDER [None]
  - OVERDOSE [None]
